FAERS Safety Report 14928166 (Version 3)
Quarter: 2018Q2

REPORT INFORMATION
  Report Type: Report from Study
  Country: CO (occurrence: CO)
  Receive Date: 20180523
  Receipt Date: 20180625
  Transmission Date: 20180711
  Serious: Yes (Hospitalization, Other)
  Sender: FDA-Public Use
  Company Number: CO-JNJFOC-20180418300

PATIENT
  Age: 70 Year
  Sex: Male
  Weight: 83 kg

DRUGS (3)
  1. DARZALEX [Suspect]
     Active Substance: DARATUMUMAB
     Indication: PLASMA CELL MYELOMA
     Route: 042
     Dates: start: 20180412
  2. DARZALEX [Suspect]
     Active Substance: DARATUMUMAB
     Indication: PLASMA CELL MYELOMA
     Route: 042
     Dates: start: 20180412
  3. PREGABALINE [Suspect]
     Active Substance: PREGABALIN
     Indication: PRODUCT USED FOR UNKNOWN INDICATION
     Route: 065

REACTIONS (11)
  - Thrombocytopenia [Unknown]
  - Haemoglobin decreased [Recovering/Resolving]
  - Diarrhoea [Recovering/Resolving]
  - Pain in extremity [Recovering/Resolving]
  - Listless [Recovering/Resolving]
  - Infusion related reaction [Recovered/Resolved]
  - Hepatotoxicity [Unknown]
  - Pruritus [Recovering/Resolving]
  - Diarrhoea [Recovering/Resolving]
  - Febrile neutropenia [Recovering/Resolving]
  - Decreased appetite [Recovering/Resolving]

NARRATIVE: CASE EVENT DATE: 20180412
